FAERS Safety Report 8153907-6 (Version None)
Quarter: 2012Q1

REPORT INFORMATION
  Report Type: 
  Country: None (occurrence: None)
  Receive Date: 20120221
  Receipt Date: 20120210
  Transmission Date: 20120608
  Serious: Yes (Other)
  Sender: FDA-Public Use
  Company Number: DE-ROCHE-1040114

PATIENT
  Sex: Male

DRUGS (5)
  1. MABTHERA [Suspect]
     Indication: WALDENSTROM'S MACROGLOBULINAEMIA
     Dates: end: 20081101
  2. VINCRISTINE [Concomitant]
     Indication: WALDENSTROM'S MACROGLOBULINAEMIA
  3. CYCLOSPORINE [Concomitant]
     Indication: WALDENSTROM'S MACROGLOBULINAEMIA
     Dates: end: 20081101
  4. DOXORUBICIN HCL [Concomitant]
     Indication: WALDENSTROM'S MACROGLOBULINAEMIA
  5. PREDNISONE [Concomitant]
     Indication: WALDENSTROM'S MACROGLOBULINAEMIA

REACTIONS (4)
  - NEUROLOGICAL SYMPTOM [None]
  - PROGRESSIVE MULTIFOCAL LEUKOENCEPHALOPATHY [None]
  - SECONDARY IMMUNODEFICIENCY [None]
  - HERPES ZOSTER [None]
